FAERS Safety Report 10451896 (Version 1)
Quarter: 2014Q3

REPORT INFORMATION
  Report Type: Spontaneous
  Country: US (occurrence: None)
  Receive Date: 20140912
  Receipt Date: 20140912
  Transmission Date: 20150326
  Serious: No
  Sender: FDA-Public Use
  Company Number: None

PATIENT
  Age: 60 Year
  Sex: Male
  Weight: 87.9 kg

DRUGS (24)
  1. ALBUTEROL. [Concomitant]
     Active Substance: ALBUTEROL
  2. GUAIFENESIN. [Concomitant]
     Active Substance: GUAIFENESIN
  3. FLUSH IV LINE [Concomitant]
  4. TRAZODONE HYDROCHLORIDE. [Concomitant]
     Active Substance: TRAZODONE HYDROCHLORIDE
  5. CHOLECALCIFEROL [Concomitant]
     Active Substance: CHOLECALCIFEROL
  6. FAMOTADINE [Concomitant]
  7. KETOCONAZOLE. [Concomitant]
     Active Substance: KETOCONAZOLE
  8. DIAZEPAM. [Concomitant]
     Active Substance: DIAZEPAM
  9. ACETAMINOPHEN. [Concomitant]
     Active Substance: ACETAMINOPHEN
  10. ONDANSETRON HCL [Concomitant]
     Active Substance: ONDANSETRON HYDROCHLORIDE
  11. PSYLLIUM PACKET MIX [Concomitant]
  12. SODIUM CHLORIDE. [Concomitant]
     Active Substance: SODIUM CHLORIDE
  13. TRAMADOL HCL [Concomitant]
     Active Substance: TRAMADOL HYDROCHLORIDE
  14. LOZENGE [Concomitant]
     Active Substance: NICOTINE
  15. FILGRASTIM [Concomitant]
     Active Substance: FILGRASTIM
  16. BISACODYL. [Concomitant]
     Active Substance: BISACODYL
  17. FLUOXETINE [Concomitant]
     Active Substance: FLUOXETINE\FLUOXETINE HYDROCHLORIDE
  18. SIMETHICONE [Concomitant]
     Active Substance: DIMETHICONE\SILICON DIOXIDE\SIMETHICONE
  19. FLEBOGAMMA [Suspect]
     Active Substance: HUMAN IMMUNOGLOBULIN G
     Indication: IMMUNODEFICIENCY
     Route: 042
  20. CEPACOL SNESATIONS COOLING [Concomitant]
  21. NYSTATIN. [Concomitant]
     Active Substance: NYSTATIN
  22. ENOXAPARIN [Concomitant]
     Active Substance: ENOXAPARIN
  23. LACTOBACILLUS RH OXIDE [Concomitant]
  24. METAXALONE. [Concomitant]
     Active Substance: METAXALONE

REACTIONS (2)
  - Infusion related reaction [None]
  - Muscle spasms [None]

NARRATIVE: CASE EVENT DATE: 20140906
